FAERS Safety Report 24396265 (Version 1)
Quarter: 2024Q4

REPORT INFORMATION
  Report Type: Spontaneous
  Country: US (occurrence: US)
  Receive Date: 20241004
  Receipt Date: 20241004
  Transmission Date: 20250115
  Serious: Yes (Other)
  Sender: BAYER
  Company Number: US-BAYER-2024A140036

PATIENT
  Age: 75 Year
  Sex: Male

DRUGS (1)
  1. CORICIDIN HBP MAXIMUM STRENGTH COLD AND FLU DAY AND NIGHT [Suspect]
     Active Substance: ACETAMINOPHEN\DEXTROMETHORPHAN HYDROBROMIDE\DOXYLAMINE SUCCINATE\GUAIFENESIN
     Indication: Prophylaxis
     Dosage: 1 FOR THE NIGHT
     Route: 048
     Dates: start: 202409

REACTIONS (2)
  - Foreign body in throat [Recovering/Resolving]
  - Foreign body in throat [Recovering/Resolving]
